FAERS Safety Report 5256796-2 (Version None)
Quarter: 2007Q1

REPORT INFORMATION
  Report Type: 
  Country: None (occurrence: None)
  Receive Date: 20070306
  Receipt Date: 20070227
  Transmission Date: 20070707
  Serious: Yes (Hospitalization)
  Sender: FDA-Public Use
  Company Number: US-ROXANE LABORATORIES, INC-2007-BP-02758RO

PATIENT
  Age: 41 Year
  Sex: Male

DRUGS (4)
  1. ROXICET [Suspect]
     Indication: PROCEDURAL PAIN
     Dosage: TOTAL DOSE OF 67 TABLETS (OXYCODONE 5 MG/ACETAMINOPHEN 325 MG EACH)
     Route: 048
  2. HYDROMORPHONE HCL [Suspect]
     Indication: PROCEDURAL PAIN
     Dosage: 1 MG THEN CONTINUOUS INFUSTION AT 2 MG/H
     Route: 042
  3. ANTIBIOTICS [Concomitant]
     Indication: INFECTION
  4. COLCHICINE [Concomitant]
     Indication: GOUT

REACTIONS (16)
  - APNOEA [None]
  - BRADYCARDIA [None]
  - DRUG LEVEL INCREASED [None]
  - HYPERHIDROSIS [None]
  - HYPOTENSION [None]
  - LETHARGY [None]
  - MIOSIS [None]
  - PYREXIA [None]
  - RESPIRATORY DEPRESSION [None]
  - RESPIRATORY RATE DECREASED [None]
  - SINUS ARREST [None]
  - SKIN DISCOLOURATION [None]
  - SLEEP APNOEA SYNDROME [None]
  - SOMNOLENCE [None]
  - STUPOR [None]
  - UNRESPONSIVE TO STIMULI [None]
